FAERS Safety Report 4752591-9 (Version None)
Quarter: 2005Q3

REPORT INFORMATION
  Report Type: 
  Country: None (occurrence: None)
  Receive Date: 20050824
  Receipt Date: 20050811
  Transmission Date: 20060218
  Serious: Yes (Hospitalization, Other)
  Sender: FDA-Public Use
  Company Number: 2005115157

PATIENT
  Sex: Male

DRUGS (4)
  1. VIAGRA [Suspect]
     Indication: ERECTILE DYSFUNCTION
  2. MOBIC [Concomitant]
  3. AVANDIA [Concomitant]
  4. ALTACE [Concomitant]

REACTIONS (2)
  - PENILE HAEMORRHAGE [None]
  - TRANSIENT ISCHAEMIC ATTACK [None]
